FAERS Safety Report 25578946 (Version 1)
Quarter: 2025Q3

REPORT INFORMATION
  Report Type: Spontaneous
  Country: US (occurrence: US)
  Receive Date: 20250718
  Receipt Date: 20250718
  Transmission Date: 20251021
  Serious: Yes (Other)
  Sender: MERCK SHARP & DOHME LLC
  Company Number: US-009507513-2307723

PATIENT
  Age: 48 Year
  Sex: Female

DRUGS (7)
  1. IMIPENEM [Suspect]
     Active Substance: IMIPENEM
     Indication: Mycobacterium fortuitum infection
     Route: 042
     Dates: start: 20250224, end: 20250305
  2. OMADACYCLINE [Suspect]
     Active Substance: OMADACYCLINE
     Indication: Mycobacterium fortuitum infection
     Route: 065
     Dates: start: 20250410, end: 20250414
  3. BACTRIM [Suspect]
     Active Substance: SULFAMETHOXAZOLE\TRIMETHOPRIM
     Indication: Mycobacterium fortuitum infection
     Dosage: 1 DS, BID
     Route: 065
     Dates: start: 20250116, end: 20250328
  4. BACTRIM [Suspect]
     Active Substance: SULFAMETHOXAZOLE\TRIMETHOPRIM
     Indication: Mycobacterium fortuitum infection
     Route: 065
     Dates: start: 20250426, end: 20250601
  5. CIPROFLOXACIN [Suspect]
     Active Substance: CIPROFLOXACIN
     Indication: Mycobacterium fortuitum infection
     Route: 065
     Dates: start: 20250211, end: 20250409
  6. DOXYCYCLINE [Suspect]
     Active Substance: DOXYCYCLINE
     Indication: Mycobacterium fortuitum infection
     Route: 048
     Dates: start: 20250109, end: 20250210
  7. CEFOXITIN [Suspect]
     Active Substance: CEFOXITIN SODIUM
     Indication: Mycobacterium fortuitum infection
     Route: 042
     Dates: start: 20250317, end: 20250324

REACTIONS (4)
  - Cytopenia [Unknown]
  - Product use in unapproved indication [Unknown]
  - Liver function test increased [Unknown]
  - Hypoglycaemia [Unknown]

NARRATIVE: CASE EVENT DATE: 20250224
